FAERS Safety Report 18350662 (Version 1)
Quarter: 2020Q4

REPORT INFORMATION
  Report Type: Spontaneous
  Country: US (occurrence: US)
  Receive Date: 20201006
  Receipt Date: 20201006
  Transmission Date: 20210114
  Serious: No
  Sender: FDA-Public Use
  Company Number: US-MSNLABS-2020MSNSPO00364

PATIENT

DRUGS (1)
  1. ROSUVASTATIN TABLETS 10 MG [Suspect]
     Active Substance: ROSUVASTATIN
     Indication: BLOOD CHOLESTEROL
     Dosage: 1 TABLET IN THE MORNING
     Route: 065

REACTIONS (2)
  - Seborrhoea [Unknown]
  - Urine abnormality [Unknown]
